FAERS Safety Report 12489078 (Version 7)
Quarter: 2018Q4

REPORT INFORMATION
  Report Type: Spontaneous
  Country: BR (occurrence: BR)
  Receive Date: 20160622
  Receipt Date: 20181119
  Transmission Date: 20190204
  Serious: Yes (Hospitalization, Other)
  Sender: FDA-Public Use
  Company Number: BR-PFIZER INC-2016307361

PATIENT
  Age: 51 Year
  Sex: Female
  Weight: 77 kg

DRUGS (7)
  1. EFFEXOR XR [Suspect]
     Active Substance: VENLAFAXINE HYDROCHLORIDE
     Indication: MALAISE
     Dosage: 75 MG, ALTERNATE DAY
     Route: 048
  2. EFFEXOR XR [Suspect]
     Active Substance: VENLAFAXINE HYDROCHLORIDE
     Dosage: 75 MG, 1X/DAY
     Dates: start: 2012
  3. EFFEXOR XR [Suspect]
     Active Substance: VENLAFAXINE HYDROCHLORIDE
     Indication: PAIN
     Dosage: 150 MG, UNK
     Route: 048
     Dates: start: 2008
  4. EFFEXOR XR [Suspect]
     Active Substance: VENLAFAXINE HYDROCHLORIDE
     Indication: STRESS
     Dosage: 1 TABLET OF 75MG PER DAY
  5. LEXOTAN [Concomitant]
     Active Substance: BROMAZEPAM
     Indication: PALPITATIONS
     Dosage: 0.5 TABLET SPORADICALLY
     Route: 048
  6. LEXOTAN [Concomitant]
     Active Substance: BROMAZEPAM
     Indication: BLOOD PRESSURE FLUCTUATION
  7. EFFEXOR XR [Suspect]
     Active Substance: VENLAFAXINE HYDROCHLORIDE
     Indication: MENTAL DISORDER
     Dosage: 150 MG, 1X/DAY
     Dates: start: 2008, end: 2012

REACTIONS (16)
  - Pulmonary embolism [Recovered/Resolved]
  - Depressed mood [Recovered/Resolved]
  - Tremor [Not Recovered/Not Resolved]
  - Neoplasm [Unknown]
  - Erythema [Unknown]
  - Cerebellar tumour [Recovered/Resolved]
  - Nausea [Recovered/Resolved]
  - Headache [Recovered/Resolved]
  - Brain oedema [Recovered/Resolved]
  - Thyroid cancer [Recovered/Resolved]
  - Metastases to central nervous system [Not Recovered/Not Resolved]
  - Vomiting [Recovered/Resolved]
  - Breast cancer [Recovered/Resolved]
  - Breast cellulitis [Recovered/Resolved]
  - Cholelithiasis [Recovered/Resolved]
  - Breast enlargement [Recovered/Resolved]

NARRATIVE: CASE EVENT DATE: 201112
